FAERS Safety Report 5084789-7 (Version None)
Quarter: 2006Q3

REPORT INFORMATION
  Report Type: 
  Country: None (occurrence: None)
  Receive Date: 20060815
  Receipt Date: 20060731
  Transmission Date: 20061208
  Serious: Yes (Hospitalization)
  Sender: FDA-Public Use
  Company Number: FR200608000024

PATIENT
  Age: 56 Year
  Sex: Female

DRUGS (3)
  1. FORTEO [Suspect]
     Indication: OSTEOPOROSIS
     Dosage: 20 UG, DAILY (1/D), SUBCUTANEOUS
     Route: 058
     Dates: start: 20051104
  2. FORTEO [Concomitant]
  3. MORPHINE SULFATE [Concomitant]

REACTIONS (7)
  - DYSPNOEA [None]
  - DYSURIA [None]
  - FALL [None]
  - HYPERTHERMIA [None]
  - PLEURISY [None]
  - RIB FRACTURE [None]
  - SPUTUM PURULENT [None]
